FAERS Safety Report 5821970-0 (Version None)
Quarter: 2008Q3

REPORT INFORMATION
  Report Type: 
  Country: None (occurrence: None)
  Receive Date: 20080724
  Receipt Date: 20080723
  Transmission Date: 20090109
  Serious: Yes (Death, Hospitalization)
  Sender: FDA-Public Use
  Company Number: BW-GILEAD-2008-0017398

PATIENT
  Age: 36 Year
  Sex: Female

DRUGS (2)
  1. ATRIPLA [Suspect]
     Indication: HIV INFECTION
     Route: 048
     Dates: start: 20080615
  2. AUGMENTIN '125' [Concomitant]
     Indication: PNEUMONIA

REACTIONS (1)
  - RENAL FAILURE [None]
